FAERS Safety Report 5122010-1 (Version None)
Quarter: 2006Q4

REPORT INFORMATION
  Report Type: 
  Country: None (occurrence: None)
  Receive Date: 20061006
  Receipt Date: 20061002
  Transmission Date: 20070319
  Serious: Yes (Death, Other)
  Sender: FDA-Public Use
  Company Number: PHBS2006DE15387

PATIENT
  Age: 53 Year
  Sex: Female

DRUGS (1)
  1. ZOMETA [Suspect]
     Indication: BREAST CANCER
     Dates: start: 20020901, end: 20030901

REACTIONS (4)
  - DEATH [None]
  - ENDODONTIC PROCEDURE [None]
  - OSTEONECROSIS [None]
  - TOOTH EXTRACTION [None]
